FAERS Safety Report 19201320 (Version 1)
Quarter: 2021Q2

REPORT INFORMATION
  Report Type: Report from Study
  Country: US (occurrence: US)
  Receive Date: 20210430
  Receipt Date: 20210430
  Transmission Date: 20210717
  Serious: No
  Sender: FDA-Public Use
  Company Number: NVSC2021US097255

PATIENT
  Sex: Male
  Weight: 8 kg

DRUGS (1)
  1. ZOLGENSMA [Suspect]
     Active Substance: ONASEMNOGENE ABEPARVOVEC-XIOI
     Indication: SPINAL MUSCULAR ATROPHY
     Dosage: 5.5 MG, ONCE/SINGLE
     Route: 042
     Dates: start: 20200115

REACTIONS (1)
  - Muscle fatigue [Unknown]
